FAERS Safety Report 25990527 (Version 2)
Quarter: 2025Q4

REPORT INFORMATION
  Report Type: Spontaneous
  Country: CA (occurrence: CA)
  Receive Date: 20251103
  Receipt Date: 20251231
  Transmission Date: 20260118
  Serious: Yes (Other)
  Sender: PFIZER
  Company Number: CA-PFIZER INC-202500101758

PATIENT
  Age: 14 Year
  Sex: Male

DRUGS (9)
  1. NGENLA [Suspect]
     Active Substance: SOMATROGON-GHLA
     Indication: Growth hormone deficiency
     Dosage: 29 MG, WEEKLY
     Route: 058
     Dates: start: 20240724, end: 202407
  2. NGENLA [Suspect]
     Active Substance: SOMATROGON-GHLA
     Dosage: 30 MG, WEEKLY
     Route: 058
     Dates: start: 202407, end: 202502
  3. NGENLA [Suspect]
     Active Substance: SOMATROGON-GHLA
     Dosage: 35 MG, WEEKLY
     Route: 058
     Dates: start: 202502, end: 20251006
  4. CALCIUM [Concomitant]
     Active Substance: CALCIUM
     Dosage: UNK, SUPPLEMENT
  5. FLUOXETINE [Concomitant]
     Active Substance: FLUOXETINE HYDROCHLORIDE
     Dosage: UNK
  6. MONTELUKAST [Concomitant]
     Active Substance: MONTELUKAST
     Dosage: UNK
  7. QVAR [Concomitant]
     Active Substance: BECLOMETHASONE DIPROPIONATE
     Dosage: UNK
  8. VENTOLIN [Concomitant]
     Active Substance: ALBUTEROL SULFATE
     Dosage: UNK
  9. VYVANSE [Concomitant]
     Active Substance: LISDEXAMFETAMINE DIMESYLATE
     Indication: Attention deficit hyperactivity disorder
     Dosage: 20 MG, 1X/DAY (DIE)

REACTIONS (3)
  - Laryngeal stenosis [Not Recovered/Not Resolved]
  - Condition aggravated [Not Recovered/Not Resolved]
  - Joint instability [Unknown]
